FAERS Safety Report 5813248-6 (Version None)
Quarter: 2008Q3

REPORT INFORMATION
  Report Type: 
  Country: None (occurrence: None)
  Receive Date: 20080711
  Receipt Date: 20080627
  Transmission Date: 20090109
  Serious: Yes (Hospitalization)
  Sender: FDA-Public Use
  Company Number: 2008BI016638

PATIENT
  Age: 37 Year
  Sex: Male

DRUGS (1)
  1. TYSABRI [Suspect]
     Indication: MULTIPLE SCLEROSIS
     Dosage: 300 MG; QM; IV
     Route: 042
     Dates: start: 20080208

REACTIONS (5)
  - CATHETER SITE HAEMORRHAGE [None]
  - OEDEMA PERIPHERAL [None]
  - PENILE HAEMORRHAGE [None]
  - PYREXIA [None]
  - RESIDUAL URINE [None]
